FAERS Safety Report 5637127-2 (Version None)
Quarter: 2008Q1

REPORT INFORMATION
  Report Type: 
  Country: None (occurrence: None)
  Receive Date: 20080225
  Receipt Date: 20080214
  Transmission Date: 20080703
  Serious: Yes (Death)
  Sender: FDA-Public Use
  Company Number: GB-ROCHE-547487

PATIENT
  Age: 67 Year
  Sex: Male

DRUGS (12)
  1. CAPECITABINE [Suspect]
     Dosage: DOSAGE: NI.
     Route: 048
     Dates: start: 20070907
  2. CAPECITABINE [Suspect]
     Route: 048
     Dates: start: 20070725
  3. OXALIPLATIN [Suspect]
     Route: 041
     Dates: start: 20070907, end: 20070907
  4. OXALIPLATIN [Suspect]
     Route: 041
     Dates: start: 20070725
  5. CETUXIMAB [Suspect]
     Route: 041
     Dates: start: 20070907, end: 20070907
  6. CETUXIMAB [Suspect]
     Route: 041
     Dates: start: 20070725
  7. RANITIDINE [Concomitant]
     Route: 041
     Dates: start: 20070725, end: 20070906
  8. CHLORPHENAMINE [Concomitant]
     Route: 041
     Dates: start: 20070725, end: 20070906
  9. ACETAMINOPHEN [Concomitant]
     Route: 048
     Dates: start: 20070725, end: 20070906
  10. GRANISETRON [Concomitant]
     Route: 041
     Dates: start: 20070725, end: 20070908
  11. DEXAMETHASONE TAB [Concomitant]
     Dosage: DOSAGE: NI.
     Route: 048
     Dates: start: 20070725, end: 20070908
  12. DOPERIDONE [Concomitant]
     Route: 048
     Dates: start: 20070725, end: 20070731

REACTIONS (2)
  - DEATH [None]
  - SUDDEN DEATH [None]
